FAERS Safety Report 16590511 (Version 1)
Quarter: 2019Q3

REPORT INFORMATION
  Report Type: Spontaneous
  Country: AR (occurrence: AR)
  Receive Date: 20190718
  Receipt Date: 20190718
  Transmission Date: 20191004
  Serious: Yes (Other)
  Sender: FDA-Public Use
  Company Number: AR-PFIZER INC-2019292145

PATIENT
  Age: 72 Year
  Sex: Male

DRUGS (1)
  1. SUTENT [Suspect]
     Active Substance: SUNITINIB MALATE
     Indication: METASTATIC RENAL CELL CARCINOMA
     Dosage: UNK
     Dates: start: 20160414

REACTIONS (6)
  - White blood cell count decreased [Unknown]
  - Peripheral artery occlusion [Unknown]
  - Investigation abnormal [Unknown]
  - Skin irritation [Unknown]
  - Red blood cell count decreased [Unknown]
  - Gastritis [Unknown]

NARRATIVE: CASE EVENT DATE: 2016
